FAERS Safety Report 14870891 (Version 8)
Quarter: 2019Q2

REPORT INFORMATION
  Report Type: Spontaneous
  Country: US (occurrence: US)
  Receive Date: 20180509
  Receipt Date: 20190411
  Transmission Date: 20190711
  Serious: Yes (Other)
  Sender: FDA-Public Use
  Company Number: US-PFIZER INC-2018187076

PATIENT
  Age: 66 Year
  Sex: Female
  Weight: 102 kg

DRUGS (4)
  1. IBRANCE [Suspect]
     Active Substance: PALBOCICLIB
     Indication: BREAST CANCER METASTATIC
     Dosage: 125 MG, CYCLIC (DAYS 1 TO 21, EVERY 28 DAYS)
     Route: 048
     Dates: start: 20170612
  2. IBRANCE [Suspect]
     Active Substance: PALBOCICLIB
     Dosage: 125 MG, CYCLIC (DAYS 1 TO 21, EVERY 28 DAYS)
     Route: 048
  3. IBRANCE [Suspect]
     Active Substance: PALBOCICLIB
     Dosage: 125 MG, CYCLIC (DAYS 1 TO 21, EVERY 28 DAYS)
     Route: 048
  4. IBRANCE [Suspect]
     Active Substance: PALBOCICLIB
     Dosage: 125 MG, CYCLIC (DAY 1-21 Q 28 DAYS)
     Route: 048
     Dates: start: 20170612, end: 201903

REACTIONS (15)
  - Oral pain [Unknown]
  - Lacrimation increased [Unknown]
  - Eye disorder [Unknown]
  - Fatigue [Unknown]
  - Blood pressure increased [Unknown]
  - Nasal disorder [Unknown]
  - Sinusitis [Unknown]
  - Full blood count decreased [Unknown]
  - Arthritis [Unknown]
  - Alopecia [Unknown]
  - Cataract [Unknown]
  - Neoplasm progression [Unknown]
  - Macular hole [Unknown]
  - Musculoskeletal stiffness [Unknown]
  - White blood cell count decreased [Unknown]
